FAERS Safety Report 13012110 (Version 28)
Quarter: 2018Q2

REPORT INFORMATION
  Report Type: Spontaneous
  Country: CO (occurrence: CO)
  Receive Date: 20161209
  Receipt Date: 20180612
  Transmission Date: 20180711
  Serious: Yes (Life-Threatening, Other)
  Sender: FDA-Public Use
  Company Number: PHHY2016CO167424

PATIENT
  Age: 62 Year
  Sex: Female
  Weight: 67 kg

DRUGS (5)
  1. TASIGNA [Suspect]
     Active Substance: NILOTINIB
     Dosage: 400 MG, Q12H (EVERY 12 HOURS)
     Route: 048
     Dates: start: 201403
  2. TASIGNA [Suspect]
     Active Substance: NILOTINIB
     Dosage: 150 MG, Q12H (2 TABLET EVERY 12 HOURS)
     Route: 048
  3. TASIGNA [Suspect]
     Active Substance: NILOTINIB
     Dosage: 300 MG, Q12H (EVERY 12 HOURS)
     Route: 048
     Dates: start: 201403
  4. TASIGNA [Suspect]
     Active Substance: NILOTINIB
     Indication: CHRONIC MYELOID LEUKAEMIA
     Dosage: 300 MG, BID (2 CAPSULES OF 150 MG EVERY 12 HOURS)
     Route: 048
     Dates: start: 20121201, end: 20170206
  5. TASIGNA [Suspect]
     Active Substance: NILOTINIB
     Dosage: 300 MG, Q12H (150MG 2 CAPSULE EVERY 12 HOURS))
     Route: 048

REACTIONS (28)
  - Diabetes mellitus [Unknown]
  - Varicose vein [Unknown]
  - Ocular hyperaemia [Unknown]
  - Cholelithiasis [Unknown]
  - Cytogenetic analysis abnormal [Unknown]
  - Drug intolerance [Unknown]
  - Cardiac disorder [Unknown]
  - Arthralgia [Recovering/Resolving]
  - Pain in extremity [Unknown]
  - Hyperglycaemia [Unknown]
  - Chest pain [Unknown]
  - Hypothyroidism [Unknown]
  - Malignant neoplasm progression [Unknown]
  - Crying [Unknown]
  - Peripheral swelling [Unknown]
  - Oedema peripheral [Unknown]
  - Malaise [Unknown]
  - Chronic myeloid leukaemia [Unknown]
  - Normochromic normocytic anaemia [Unknown]
  - Depression [Unknown]
  - General physical health deterioration [Unknown]
  - Pallor [Unknown]
  - Hepatomegaly [Unknown]
  - Dyslipidaemia [Unknown]
  - Hepatic steatosis [Unknown]
  - Blood creatinine decreased [Unknown]
  - Pain [Unknown]
  - Hypertension [Unknown]

NARRATIVE: CASE EVENT DATE: 20151005
